FAERS Safety Report 7543253-3 (Version None)
Quarter: 2011Q2

REPORT INFORMATION
  Report Type: 
  Country: None (occurrence: None)
  Receive Date: 20110613
  Receipt Date: 20110610
  Transmission Date: 20111010
  Serious: Yes (Other)
  Sender: FDA-Public Use
  Company Number: CHPA2011US07825

PATIENT
  Sex: Male
  Weight: 52.154 kg

DRUGS (2)
  1. EXCEDRIN (MIGRAINE) [Suspect]
     Indication: BONE PAIN
     Dosage: 2 DF, UNK
     Route: 048
     Dates: start: 20110101, end: 20110101
  2. EXCEDRIN (MIGRAINE) [Suspect]
     Indication: ARTHRALGIA
     Dosage: 0.5 DF, QD
     Route: 048
     Dates: start: 20080101

REACTIONS (3)
  - UNDERDOSE [None]
  - SPINAL FRACTURE [None]
  - INCORRECT DRUG ADMINISTRATION DURATION [None]
